FAERS Safety Report 22008723 (Version 4)
Quarter: 2023Q1

REPORT INFORMATION
  Report Type: Spontaneous
  Country: RO (occurrence: RO)
  Receive Date: 20230219
  Receipt Date: 20230329
  Transmission Date: 20230418
  Serious: Yes (Death, Hospitalization, Other)
  Sender: FDA-Public Use
  Company Number: RO-ROCHE-3282529

PATIENT
  Age: 65 Year
  Sex: Male
  Weight: 100 kg

DRUGS (20)
  1. BEVACIZUMAB [Suspect]
     Active Substance: BEVACIZUMAB
     Indication: Hepatocellular carcinoma
     Dosage: 1400 MILLIGRAM
     Route: 042
     Dates: start: 20221228
  2. ATEZOLIZUMAB [Suspect]
     Active Substance: ATEZOLIZUMAB
     Indication: Hepatocellular carcinoma
     Dosage: 1200 MILLIGRAM, Q3WK
     Route: 040
     Dates: start: 20221228, end: 20230118
  3. FLUCONAZOLE [Concomitant]
     Active Substance: FLUCONAZOLE
     Dosage: YES
  4. PROPRANOLOL [Concomitant]
     Active Substance: PROPRANOLOL HYDROCHLORIDE
     Dosage: 0.5 DAY
     Dates: end: 20230216
  5. FERROUS SULFATE [Concomitant]
     Active Substance: FERROUS SULFATE
     Dosage: UNK
     Dates: start: 20230118
  6. CER [Concomitant]
     Dosage: UNK
  7. VANCOMYCIN [Concomitant]
     Active Substance: VANCOMYCIN
     Dosage: UNK
  8. DEXAMETHASONE [Concomitant]
     Active Substance: DEXAMETHASONE
     Dosage: UNK
     Dates: start: 20230118, end: 20230123
  9. CONTROLOC [Concomitant]
     Active Substance: PANTOPRAZOLE SODIUM
     Dosage: UNK
     Dates: end: 20230216
  10. Algifen [Concomitant]
     Dosage: YES
     Dates: start: 20230118
  11. RIFAXIMIN [Concomitant]
     Active Substance: RIFAXIMIN
     Dosage: UNK
     Dates: end: 20230216
  12. ALBUMIN HUMAN [Concomitant]
     Active Substance: ALBUMIN HUMAN
  13. URSODIOL [Concomitant]
     Active Substance: URSODIOL
     Dosage: UNK
     Dates: end: 20230216
  14. ENOXAPARIN SODIUM [Concomitant]
     Active Substance: ENOXAPARIN SODIUM
  15. GLICLAZIDE [Concomitant]
     Active Substance: GLICLAZIDE
     Dosage: UNK, QD
     Dates: end: 20230128
  16. Diurex [Concomitant]
     Dosage: 0.5 DAY
     Dates: end: 20230128
  17. ESSENTIALE FORTE [Concomitant]
     Dosage: UNK, QD
     Dates: end: 20230128
  18. MEROPENEM [Concomitant]
     Active Substance: MEROPENEM
  19. AMINOSTERIL N HEPA [Concomitant]
  20. FUROSEMIDE [Concomitant]
     Active Substance: FUROSEMIDE

REACTIONS (6)
  - Intestinal ischaemia [Fatal]
  - Thrombocytopenia [Not Recovered/Not Resolved]
  - Neutropenia [Recovered/Resolved]
  - Leukopenia [Recovered/Resolved]
  - Anaemia [Not Recovered/Not Resolved]
  - Off label use [Unknown]

NARRATIVE: CASE EVENT DATE: 20221228
